FAERS Safety Report 15869263 (Version 1)
Quarter: 2019Q1

REPORT INFORMATION
  Report Type: Spontaneous
  Country: GB (occurrence: FR)
  Receive Date: 20190125
  Receipt Date: 20190125
  Transmission Date: 20190417
  Serious: Yes (Other)
  Sender: FDA-Public Use
  Company Number: FR-FRESENIUS KABI-FK201900769

PATIENT
  Sex: Female

DRUGS (3)
  1. SODIUM CHLORIDE (MANUFACTURER UNKNOWN) [Suspect]
     Active Substance: SODIUM CHLORIDE
     Indication: FLUID REPLACEMENT
     Dosage: 1000ML/DAY
     Route: 042
     Dates: start: 20180303, end: 20180307
  2. GABAPENTIN. [Concomitant]
     Active Substance: GABAPENTIN
  3. GLUCOSE (MANUFACTURER UNKNOWN) [Suspect]
     Active Substance: DEXTROSE
     Indication: FLUID REPLACEMENT
     Dosage: 1000ML/DAY
     Route: 042
     Dates: start: 20180227, end: 20180302

REACTIONS (3)
  - Hyponatraemia [Not Recovered/Not Resolved]
  - Hyperglycaemia [Not Recovered/Not Resolved]
  - Oedema [Not Recovered/Not Resolved]

NARRATIVE: CASE EVENT DATE: 20180310
